FAERS Safety Report 9771042 (Version 2)
Quarter: 2014Q1

REPORT INFORMATION
  Report Type: Spontaneous
  Country: US (occurrence: US)
  Receive Date: 20131218
  Receipt Date: 20140228
  Transmission Date: 20141002
  Serious: Yes (Other)
  Sender: FDA-Public Use
  Company Number: US-UCBSA-105825

PATIENT
  Age: 20 Year
  Sex: Female
  Weight: 52.6 kg

DRUGS (2)
  1. KEPPRA [Suspect]
     Indication: CONVULSION
     Dosage: STRENGTH: 500 MG, 1000MG IN AM, 1500MG AT BEDTIME
     Route: 048
     Dates: start: 2008
  2. DEPO [Concomitant]
     Indication: CONTRACEPTION
     Dosage: EVERY 3 MONTHS
     Dates: start: 2011

REACTIONS (1)
  - Hand fracture [Recovering/Resolving]
